FAERS Safety Report 4287263-0 (Version None)
Quarter: 2004Q1

REPORT INFORMATION
  Report Type: 
  Country: None (occurrence: None)
  Receive Date: 20040126
  Receipt Date: 20030904
  Transmission Date: 20041129
  Serious: No
  Sender: FDA-Public Use
  Company Number: USA030639958

PATIENT
  Age: 65 Year
  Sex: Female

DRUGS (12)
  1. FORTEO [Suspect]
     Indication: OSTEOPOROSIS
     Dosage: 20 UG/DAY
     Dates: start: 20030605, end: 20030617
  2. DARVON [Concomitant]
  3. PREDNISONE [Concomitant]
  4. LIPITOR [Concomitant]
  5. ACCOLATE [Concomitant]
  6. ALBUTEROL [Concomitant]
  7. FOSAMAX [Concomitant]
  8. NASACORT AQ (TRIAMCINOLONE ACETATE) [Concomitant]
  9. CROMOLYN SODIUM [Concomitant]
  10. PULMICORT [Concomitant]
  11. CALCIUM WITH VITAMIN D [Concomitant]
  12. ALBUTEROL SULFATE [Concomitant]

REACTIONS (7)
  - ABDOMINAL PAIN [None]
  - ANOREXIA [None]
  - BLOOD CALCIUM INCREASED [None]
  - CONSTIPATION [None]
  - FATIGUE [None]
  - NAUSEA [None]
  - VOMITING [None]
